FAERS Safety Report 8827688 (Version 1)
Quarter: 2012Q4

REPORT INFORMATION
  Report Type: 
  Country: BR (occurrence: BR)
  Receive Date: 20121005
  Receipt Date: 20121005
  Transmission Date: 20130627
  Serious: Yes (Hospitalization, Other)
  Sender: FDA-Public Use
  Company Number: PHHY2012BR085344

PATIENT
  Age: 81 None
  Sex: Female
  Weight: 67 kg

DRUGS (13)
  1. DIOVAN [Suspect]
     Indication: HYPERTENSION
     Dosage: 1 tablet (160mg) a day
     Route: 048
     Dates: start: 2005
  2. DIOVAN [Suspect]
     Dosage: 1 tablet (320mg) a day
     Route: 048
     Dates: start: 2005
  3. HYDROCHLOROTHIAZIDE [Suspect]
     Dosage: 1 DF a day
     Route: 048
     Dates: start: 2005
  4. DIAZEPAM [Suspect]
     Dosage: 1 DF, QD
     Route: 048
     Dates: start: 2005
  5. DILTIAZEM [Suspect]
     Indication: HYPERTENSION
     Dosage: 1 DF, QD
     Route: 048
     Dates: start: 2005
  6. SIMVASTATIN [Concomitant]
     Indication: BLOOD CHOLESTEROL INCREASED
     Dosage: 1 tablet in afternoon1
     Route: 048
     Dates: start: 2005
  7. PURAN T4 [Concomitant]
     Indication: HYPOTHYROIDISM
     Dosage: 1 tablet a day
     Route: 048
  8. ALDOMET [Concomitant]
     Indication: HYPERTENSION
     Dosage: 1 DF, Q8H
  9. CLORANA [Concomitant]
     Indication: HYPERTENSION
     Dosage: UNK
  10. VERAPAMIL [Concomitant]
     Indication: HYPERTENSION
     Dosage: UNK UKN, UNK
  11. STUGERON [Concomitant]
     Indication: LABYRINTHITIS
     Dosage: UNK
  12. STUGERON [Concomitant]
     Indication: MENOPAUSE
  13. GLIFAGE XL [Concomitant]
     Indication: DIABETES MELLITUS
     Dosage: 1 DF, UNK
     Route: 048

REACTIONS (28)
  - Blood pressure fluctuation [Recovered/Resolved]
  - Cerebral haematoma [Not Recovered/Not Resolved]
  - Brain mass [Not Recovered/Not Resolved]
  - Fall [Recovered/Resolved]
  - Humerus fracture [Not Recovered/Not Resolved]
  - Hypokinesia [Not Recovered/Not Resolved]
  - Blood triglycerides increased [Recovering/Resolving]
  - Thrombosis [Recovered/Resolved]
  - Tendonitis [Recovered/Resolved]
  - Cataract [Not Recovered/Not Resolved]
  - Visual impairment [Unknown]
  - Pain [Unknown]
  - Intervertebral disc degeneration [Not Recovered/Not Resolved]
  - Neck pain [Recovered/Resolved]
  - Back pain [Recovered/Resolved]
  - Osteoporosis [Not Recovered/Not Resolved]
  - Pelvic discomfort [Not Recovered/Not Resolved]
  - Face injury [Recovered/Resolved]
  - Joint dislocation [Recovered/Resolved]
  - Musculoskeletal pain [Not Recovered/Not Resolved]
  - Balance disorder [Recovered/Resolved]
  - Back injury [Recovered/Resolved]
  - Limb discomfort [Not Recovered/Not Resolved]
  - Malaise [Recovered/Resolved]
  - Vomiting [Recovered/Resolved]
  - Stress [Not Recovered/Not Resolved]
  - Anxiety [Not Recovered/Not Resolved]
  - Labyrinthitis [Unknown]
